FAERS Safety Report 25429172 (Version 1)
Quarter: 2025Q2

REPORT INFORMATION
  Report Type: Spontaneous
  Country: US (occurrence: US)
  Receive Date: 20250612
  Receipt Date: 20250612
  Transmission Date: 20250716
  Serious: No
  Sender: Unknown Manufacturer
  Company Number: US-SPROUT PHARMACEUTICALS, INC.-2025SP000068

PATIENT
  Age: 71 Year
  Sex: Female
  Weight: 72.562 kg

DRUGS (1)
  1. ADDYI [Suspect]
     Active Substance: FLIBANSERIN
     Indication: Libido decreased
     Dosage: 100 MILLIGRAM, QD (BEDTIME)
     Route: 048
     Dates: start: 202504

REACTIONS (4)
  - Libido decreased [Not Recovered/Not Resolved]
  - Drug ineffective [Not Recovered/Not Resolved]
  - Product storage error [Not Recovered/Not Resolved]
  - Product use complaint [Unknown]

NARRATIVE: CASE EVENT DATE: 20250401
